FAERS Safety Report 19990921 (Version 3)
Quarter: 2021Q4

REPORT INFORMATION
  Report Type: Spontaneous
  Country: US (occurrence: US)
  Receive Date: 20211025
  Receipt Date: 20211219
  Transmission Date: 20220304
  Serious: No
  Sender: FDA-Public Use
  Company Number: US-UCBSA-2021048408

PATIENT
  Sex: Female

DRUGS (1)
  1. NEUPRO [Suspect]
     Active Substance: ROTIGOTINE
     Indication: Restless legs syndrome
     Dosage: 3 MILLIGRAM, ONCE DAILY (QD)

REACTIONS (6)
  - Pain [Unknown]
  - Discomfort [Unknown]
  - Restless legs syndrome [Not Recovered/Not Resolved]
  - Device adhesion issue [Unknown]
  - Therapy interrupted [Unknown]
  - Product availability issue [Unknown]
